FAERS Safety Report 16906362 (Version 1)
Quarter: 2019Q4

REPORT INFORMATION
  Report Type: Spontaneous
  Country: IT (occurrence: IT)
  Receive Date: 20191011
  Receipt Date: 20191011
  Transmission Date: 20200122
  Serious: Yes (Death)
  Sender: FDA-Public Use
  Company Number: IT-ROCHE-2423628

PATIENT
  Age: 72 Year
  Sex: Female
  Weight: 84 kg

DRUGS (12)
  1. ATORVASTATIN [Concomitant]
     Active Substance: ATORVASTATIN
     Indication: HYPERCHOLESTEROLAEMIA
     Route: 065
  2. ANTACIDS, OTHER COMBINATIONS [Concomitant]
     Active Substance: ANTACIDS NOS
  3. NORMIX [Concomitant]
     Active Substance: RIFAXIMIN
  4. RANITIDINE. [Concomitant]
     Active Substance: RANITIDINE
     Route: 065
  5. LOSARTAN POTASSICO [Concomitant]
     Indication: HYPERTENSION
     Route: 065
  6. DISSENTEN [Concomitant]
     Active Substance: LOPERAMIDE HYDROCHLORIDE
     Indication: DIARRHOEA
  7. NEBIVOLOL. [Concomitant]
     Active Substance: NEBIVOLOL
     Route: 065
  8. TICHE [Concomitant]
     Indication: AUTOIMMUNE THYROIDITIS
     Route: 065
  9. DEXAMETHASONE. [Concomitant]
     Active Substance: DEXAMETHASONE
     Route: 048
     Dates: start: 20190824, end: 20190828
  10. ENTEROGERMINA [BACILLUS CLAUSII] [Concomitant]
     Indication: DIARRHOEA
  11. OXALIPLATIN. [Concomitant]
     Active Substance: OXALIPLATIN
     Route: 041
  12. XELODA [Suspect]
     Active Substance: CAPECITABINE
     Indication: COLON CANCER
     Route: 048
     Dates: start: 20190823, end: 20190905

REACTIONS (9)
  - Diarrhoea [Fatal]
  - Neutropenia [Fatal]
  - Pyrexia [Fatal]
  - Palmar-plantar erythrodysaesthesia syndrome [Fatal]
  - Vomiting [Fatal]
  - Megacolon [Fatal]
  - Dehydration [Fatal]
  - Thrombocytopenia [Fatal]
  - Sepsis [Fatal]

NARRATIVE: CASE EVENT DATE: 20190906
